FAERS Safety Report 6811796-3 (Version None)
Quarter: 2010Q2

REPORT INFORMATION
  Report Type: 
  Country: None (occurrence: None)
  Receive Date: 20100628
  Receipt Date: 20100614
  Transmission Date: 20101027
  Serious: Yes (Other)
  Sender: FDA-Public Use
  Company Number: 1000013416

PATIENT
  Age: 83 Year
  Sex: Female

DRUGS (7)
  1. MEMANTINE HCL [Suspect]
     Indication: DEMENTIA ALZHEIMER'S TYPE
     Dosage: 10 MG, ORAL
     Route: 048
     Dates: start: 20081104, end: 20081113
  2. MEMANTINE HCL [Suspect]
     Indication: DEMENTIA ALZHEIMER'S TYPE
     Dosage: ORAL
     Route: 048
  3. METOPROLOL [Concomitant]
  4. ACETYLSALICYLIC ACID [Concomitant]
  5. GALANTAMINE [Concomitant]
  6. QUETIAPINE [Concomitant]
  7. TRAZODONE HYDROCHLORIDE [Concomitant]

REACTIONS (6)
  - APATHY [None]
  - COMMUNICATION DISORDER [None]
  - PERSONALITY DISORDER [None]
  - SOCIAL AVOIDANT BEHAVIOUR [None]
  - SPEECH DISORDER [None]
  - TONGUE SPASM [None]
